FAERS Safety Report 13104705 (Version 1)
Quarter: 2017Q1

REPORT INFORMATION
  Report Type: Spontaneous
  Country: US (occurrence: US)
  Receive Date: 20170111
  Receipt Date: 20170111
  Transmission Date: 20170428
  Serious: Yes (Disabling)
  Sender: FDA-Public Use
  Company Number: None

PATIENT
  Age: 34 Year
  Sex: Male
  Weight: 106.65 kg

DRUGS (7)
  1. ZINC. [Concomitant]
     Active Substance: ZINC
  2. VITAMIN D3 [Concomitant]
     Active Substance: CHOLECALCIFEROL
  3. ROGAINE [Suspect]
     Active Substance: MINOXIDIL
     Indication: ALOPECIA
     Route: 061
     Dates: start: 20110103, end: 20161027
  4. CLOMIPHENE [Concomitant]
     Active Substance: CLOMIPHENE
  5. ANASTROZOLE. [Concomitant]
     Active Substance: ANASTROZOLE
  6. BORON [Concomitant]
     Active Substance: BORON
  7. B VITAMINS [Suspect]
     Active Substance: CYANOCOBALAMIN\DEXPANTHENOL\NIACINAMIDE\PYRIDOXINE HYDROCHLORIDE\RIBOFLAVIN 5^-PHOSPHATE SODIUM\THIAMINE HYDROCHLORIDE\VITAMIN B COMPLEX

REACTIONS (4)
  - Erectile dysfunction [None]
  - Loss of libido [None]
  - Blood testosterone decreased [None]
  - Dark circles under eyes [None]

NARRATIVE: CASE EVENT DATE: 20151014
